FAERS Safety Report 7204038-0 (Version None)
Quarter: 2010Q4

REPORT INFORMATION
  Report Type: 
  Country: None (occurrence: None)
  Receive Date: 20101220
  Receipt Date: 20101208
  Transmission Date: 20110411
  Serious: Yes (Death, Other)
  Sender: FDA-Public Use
  Company Number: LEO-2010-00864

PATIENT
  Age: 41 Year
  Sex: Female
  Weight: 75 kg

DRUGS (2)
  1. INNOHEP [Suspect]
     Indication: DEEP VEIN THROMBOSIS
     Dosage: 14000 IU (14000 IU, 1 IN 1 D), SUBCUTANEOUS
     Route: 058
     Dates: start: 20100401, end: 20101001
  2. PREVISCAN (FLUINDIONE) [Concomitant]

REACTIONS (3)
  - CEREBRAL VENOUS THROMBOSIS [None]
  - DEEP VEIN THROMBOSIS [None]
  - PULMONARY EMBOLISM [None]
